FAERS Safety Report 24168960 (Version 3)
Quarter: 2024Q3

REPORT INFORMATION
  Report Type: Spontaneous
  Country: US (occurrence: US)
  Receive Date: 20240802
  Receipt Date: 20240930
  Transmission Date: 20241017
  Serious: Yes (Other)
  Sender: PFIZER
  Company Number: US-PFIZER INC-202400226956

PATIENT
  Age: 36 Year
  Sex: Female

DRUGS (1)
  1. TIVDAK [Suspect]
     Active Substance: TISOTUMAB VEDOTIN-TFTV
     Indication: Cervix carcinoma
     Dosage: UNK
     Dates: start: 202207, end: 202301

REACTIONS (9)
  - Neuropathy peripheral [Unknown]
  - Ocular toxicity [Unknown]
  - Muscular weakness [Unknown]
  - Peroneal nerve palsy [Unknown]
  - Mobility decreased [Unknown]
  - Neoplasm progression [Unknown]
  - Nausea [Unknown]
  - Fatigue [Unknown]
  - Eye disorder [Unknown]

NARRATIVE: CASE EVENT DATE: 20240401
